FAERS Safety Report 10494362 (Version 1)
Quarter: 2014Q4

REPORT INFORMATION
  Report Type: Spontaneous
  Country: NL (occurrence: None)
  Receive Date: 20141001
  Receipt Date: 20141001
  Transmission Date: 20150528
  Serious: Yes (Death)
  Sender: FDA-Public Use
  Company Number: 2014SCAL000128

PATIENT
  Age: 77 Year
  Sex: Male

DRUGS (3)
  1. CEFTRIAXONE (CEFTRIAXONE) [Concomitant]
     Active Substance: CEFTRIAXONE
  2. VANCOMYCIN (VANCOMYCIN) [Concomitant]
     Active Substance: VANCOMYCIN
  3. METRONIDAZOLE. [Suspect]
     Active Substance: METRONIDAZOLE
     Indication: ACUTE KIDNEY INJURY
     Route: 042

REACTIONS (10)
  - Respiratory failure [None]
  - Dyspnoea [None]
  - Haemofiltration [None]
  - Hepatic failure [None]
  - Diffuse alveolar damage [None]
  - Haemodynamic instability [None]
  - Pyrexia [None]
  - Jaundice [None]
  - Drug reaction with eosinophilia and systemic symptoms [None]
  - Organ failure [None]
